FAERS Safety Report 7338883-8 (Version None)
Quarter: 2011Q1

REPORT INFORMATION
  Report Type: 
  Country: None (occurrence: None)
  Receive Date: 20110308
  Receipt Date: 20110301
  Transmission Date: 20110831
  Serious: Yes (Other)
  Sender: FDA-Public Use
  Company Number: US-JNJFOC-20110202883

PATIENT
  Sex: Male
  Weight: 52.16 kg

DRUGS (1)
  1. INVEGA [Suspect]
     Indication: PRODUCT USED FOR UNKNOWN INDICATION
     Route: 048

REACTIONS (6)
  - TIC [None]
  - ABNORMAL BEHAVIOUR [None]
  - JOINT CREPITATION [None]
  - BONE NEOPLASM [None]
  - AGGRESSION [None]
  - OFF LABEL USE [None]
